FAERS Safety Report 20793684 (Version 2)
Quarter: 2022Q2

REPORT INFORMATION
  Report Type: Spontaneous
  Country: US (occurrence: US)
  Receive Date: 20220506
  Receipt Date: 20220512
  Transmission Date: 20220721
  Serious: Yes (Other)
  Sender: FDA-Public Use
  Company Number: US-drreddys-LIT/USA/22/0149671

PATIENT
  Sex: Male

DRUGS (13)
  1. DOXORUBICIN HYDROCHLORIDE [Suspect]
     Active Substance: DOXORUBICIN HYDROCHLORIDE
     Indication: Acute lymphocytic leukaemia
  2. CLOFARABINE [Suspect]
     Active Substance: CLOFARABINE
     Indication: Acute lymphocytic leukaemia
  3. CYTARABINE [Suspect]
     Active Substance: CYTARABINE
     Indication: Acute lymphocytic leukaemia
  4. CYCLOPHOSPHAMIDE [Suspect]
     Active Substance: CYCLOPHOSPHAMIDE
     Indication: Acute lymphocytic leukaemia
  5. METHOTREXATE [Suspect]
     Active Substance: METHOTREXATE
     Indication: Acute lymphocytic leukaemia
     Route: 037
  6. VINCRISTINE [Suspect]
     Active Substance: VINCRISTINE
     Indication: Acute lymphocytic leukaemia
  7. DAUNORUBICIN [Concomitant]
     Active Substance: DAUNORUBICIN
     Indication: Drug therapy
  8. VINCRISTINE [Concomitant]
     Active Substance: VINCRISTINE
     Indication: Drug therapy
  9. ASPARAGINASE [Concomitant]
     Active Substance: ASPARAGINASE
     Indication: Drug therapy
  10. PREDNISONE [Concomitant]
     Active Substance: PREDNISONE
     Indication: Drug therapy
  11. ETOPOSIDE [Concomitant]
     Active Substance: ETOPOSIDE
     Indication: Drug therapy
  12. CYTARABINE [Concomitant]
     Active Substance: CYTARABINE
     Indication: Drug therapy
  13. METHOTREXATE [Concomitant]
     Active Substance: METHOTREXATE
     Indication: Drug therapy

REACTIONS (1)
  - Drug ineffective [Unknown]
